FAERS Safety Report 22270033 (Version 1)
Quarter: 2023Q2

REPORT INFORMATION
  Report Type: Report from Study
  Country: CA (occurrence: CA)
  Receive Date: 20230501
  Receipt Date: 20230501
  Transmission Date: 20230722
  Serious: Yes (Other)
  Sender: FDA-Public Use
  Company Number: CA-002147023-NVSC2023CA091286

PATIENT

DRUGS (1)
  1. RUXOLITINIB [Suspect]
     Active Substance: RUXOLITINIB
     Indication: Splenomegaly
     Dosage: 500 MG
     Route: 048
     Dates: start: 20230315

REACTIONS (3)
  - Transformation to acute myeloid leukaemia [Unknown]
  - Product use in unapproved indication [Unknown]
  - Drug ineffective [Unknown]
